FAERS Safety Report 6578725-1 (Version None)
Quarter: 2010Q1

REPORT INFORMATION
  Report Type: 
  Country: None (occurrence: None)
  Receive Date: 20100202
  Receipt Date: 20100125
  Transmission Date: 20100710
  Serious: Yes (Hospitalization)
  Sender: FDA-Public Use
  Company Number: 2009SP041787

PATIENT
  Age: 59 Year
  Sex: Male

DRUGS (3)
  1. REBETOL [Suspect]
     Indication: HEPATITIS C
     Dosage: PO
     Route: 048
     Dates: start: 20080507, end: 20090320
  2. PEGASYS [Suspect]
     Indication: HEPATITIS C
     Dosage: IV
     Route: 042
     Dates: start: 20080507, end: 20090320
  3. AMANTADINE HCL [Suspect]
     Indication: HEPATITIS C
     Dosage: PO
     Route: 048
     Dates: start: 20080507, end: 20090423

REACTIONS (5)
  - FOLATE DEFICIENCY [None]
  - HEPATITIS CHOLESTATIC [None]
  - HEPATOCELLULAR INJURY [None]
  - IDIOPATHIC THROMBOCYTOPENIC PURPURA [None]
  - SERUM FERRITIN INCREASED [None]
